FAERS Safety Report 6505858-8 (Version None)
Quarter: 2009Q4

REPORT INFORMATION
  Report Type: 
  Country: None (occurrence: None)
  Receive Date: 20091218
  Receipt Date: 20091209
  Transmission Date: 20100525
  Serious: Yes (Other)
  Sender: FDA-Public Use
  Company Number: IR-BRISTOL-MYERS SQUIBB COMPANY-14889083

PATIENT
  Age: 56 Year
  Sex: Female

DRUGS (2)
  1. PACLITAXEL [Suspect]
     Indication: OVARIAN EPITHELIAL CANCER STAGE III
  2. CARBOPLATIN [Suspect]
     Indication: OVARIAN EPITHELIAL CANCER STAGE III

REACTIONS (2)
  - FACIAL PALSY [None]
  - NEUROPATHY PERIPHERAL [None]
